FAERS Safety Report 9592373 (Version 1)
Quarter: 2013Q4

REPORT INFORMATION
  Report Type: Spontaneous
  Country: TW (occurrence: TW)
  Receive Date: 20131004
  Receipt Date: 20131004
  Transmission Date: 20140711
  Serious: Yes (Life-Threatening, Other)
  Sender: FDA-Public Use
  Company Number: TW-ROCHE-1284600

PATIENT
  Age: 23 Year
  Sex: Female

DRUGS (2)
  1. ACTILYSE [Suspect]
     Indication: PULMONARY EMBOLISM
     Dosage: 100 MG 1 IN ONCE FOR 2 HOUR
     Route: 042
  2. DALTEPARIN SODIUM [Suspect]
     Indication: PULMONARY EMBOLISM
     Dosage: 18 IU/KG PER HOUR, FOLLOWED BY ADJUSTMENT OF THE DOSE EVERY 6 HOURS
     Route: 042

REACTIONS (5)
  - Haemothorax [Recovered/Resolved]
  - Pneumothorax [Recovered/Resolved]
  - Hypoxia [Recovered/Resolved]
  - Cold sweat [Recovered/Resolved]
  - Tachycardia [Recovered/Resolved]
